FAERS Safety Report 9278068 (Version 1)
Quarter: 2013Q2

REPORT INFORMATION
  Report Type: Spontaneous
  Country: JP (occurrence: JP)
  Receive Date: 20130508
  Receipt Date: 20130508
  Transmission Date: 20140414
  Serious: Yes (Death)
  Sender: FDA-Public Use
  Company Number: JP-OTSUKA-JP-2013-11255

PATIENT
  Sex: 0

DRUGS (1)
  1. SAMSCA [Suspect]
     Route: 051

REACTIONS (1)
  - Death [Fatal]
